FAERS Safety Report 25170463 (Version 2)
Quarter: 2025Q2

REPORT INFORMATION
  Report Type: Report from Study
  Country: US (occurrence: US)
  Receive Date: 20250408
  Receipt Date: 20250422
  Transmission Date: 20250716
  Serious: Yes (Death, Other)
  Sender: AMNEAL
  Company Number: US-AMNEAL PHARMACEUTICALS-2025-AMRX-01259

PATIENT
  Sex: Male

DRUGS (1)
  1. ALYMSYS [Suspect]
     Active Substance: BEVACIZUMAB-MALY
     Indication: Product used for unknown indication
     Dosage: 100 MG/ 4ML, 300 MG IV EVERY 14 DAYS
     Route: 042
     Dates: end: 202501

REACTIONS (2)
  - Renal failure [Fatal]
  - Hyperchloraemia [Fatal]
